FAERS Safety Report 12356114 (Version 3)
Quarter: 2016Q2

REPORT INFORMATION
  Report Type: Spontaneous
  Country: US (occurrence: US)
  Receive Date: 20160511
  Receipt Date: 20160606
  Transmission Date: 20160815
  Serious: Yes (Other)
  Sender: FDA-Public Use
  Company Number: ALCN2016US003235

PATIENT
  Age: 70 Year
  Sex: Male

DRUGS (3)
  1. LATANOPROST. [Suspect]
     Active Substance: LATANOPROST
     Indication: EXFOLIATION GLAUCOMA
     Route: 047
  2. ISTALOL [Concomitant]
     Active Substance: TIMOLOL MALEATE
     Indication: EXFOLIATION GLAUCOMA
     Route: 047
  3. BRIMONIDINE [Suspect]
     Active Substance: BRIMONIDINE TARTRATE
     Indication: EXFOLIATION GLAUCOMA
     Route: 047

REACTIONS (8)
  - Eye irritation [Unknown]
  - Corneal oedema [Unknown]
  - Intraocular pressure increased [Recovered/Resolved]
  - Glaucoma [Recovered/Resolved]
  - Corneal scar [Unknown]
  - Photophobia [Unknown]
  - Vision blurred [Unknown]
  - Visual acuity reduced [Recovered/Resolved]
